FAERS Safety Report 4798211-9 (Version None)
Quarter: 2005Q4

REPORT INFORMATION
  Report Type: 
  Country: None (occurrence: None)
  Receive Date: 20051014
  Receipt Date: 20040830
  Transmission Date: 20060501
  Serious: No
  Sender: FDA-Public Use
  Company Number: US-BRISTOL-MYERS SQUIBB COMPANY-12686770

PATIENT
  Age: 84 Year
  Sex: Female
  Weight: 55 kg

DRUGS (1)
  1. MEGACE [Suspect]
     Indication: ENDOMETRIAL CANCER
     Route: 048
     Dates: start: 20040801, end: 20040801

REACTIONS (2)
  - BURNING SENSATION [None]
  - DYSGEUSIA [None]
